FAERS Safety Report 9127440 (Version 2)
Quarter: 2014Q1

REPORT INFORMATION
  Report Type: Spontaneous
  Country: US (occurrence: US)
  Receive Date: 20130228
  Receipt Date: 20140228
  Transmission Date: 20141002
  Serious: No
  Sender: FDA-Public Use
  Company Number: US-GLAXOSMITHKLINE-A0975978A

PATIENT
  Age: 35 Year
  Sex: Female
  Weight: 55.9 kg

DRUGS (4)
  1. LAMOTRIGINE [Suspect]
     Indication: DEPRESSION
     Dosage: 150MG PER DAY
     Route: 048
     Dates: start: 201202
  2. SERTRALINE [Concomitant]
     Dates: end: 20120430
  3. PHENERGAN [Concomitant]
  4. ZOPHREN [Concomitant]

REACTIONS (5)
  - Nausea [Unknown]
  - Vomiting [Unknown]
  - Exposure during pregnancy [Unknown]
  - Live birth [Unknown]
  - Breast feeding [Unknown]
